FAERS Safety Report 18232340 (Version 1)
Quarter: 2020Q3

REPORT INFORMATION
  Report Type: Spontaneous
  Country: US (occurrence: US)
  Receive Date: 20200904
  Receipt Date: 20200904
  Transmission Date: 20201103
  Serious: No
  Sender: FDA-Public Use
  Company Number: None

PATIENT
  Age: 60 Year
  Sex: Female
  Weight: 54.9 kg

DRUGS (7)
  1. ALBUTEROL. [Concomitant]
     Active Substance: ALBUTEROL
  2. HYDROLYZED COLLAGEN [Concomitant]
  3. PEPPERMINT OIL [Concomitant]
     Active Substance: PEPPERMINT OIL
  4. AMLODIPINE [Concomitant]
     Active Substance: AMLODIPINE BESYLATE
  5. BEE POLLEN [Concomitant]
     Active Substance: BEE POLLEN
  6. IB GUARD [Concomitant]
  7. IC PERMETHRIN 5% CREAM [Suspect]
     Active Substance: PERMETHRIN
     Indication: BITE
     Dosage: ?          QUANTITY:1 COVER BODY;OTHER FREQUENCY:ONCE THEN 7 DAYS L;?
     Route: 061
     Dates: start: 20200904, end: 20200904

REACTIONS (5)
  - Hypertension [None]
  - Dizziness [None]
  - Dyspnoea [None]
  - Nausea [None]
  - Arthropod bite [None]

NARRATIVE: CASE EVENT DATE: 20200904
